FAERS Safety Report 16791957 (Version 1)
Quarter: 2019Q3

REPORT INFORMATION
  Report Type: Spontaneous
  Country: GB (occurrence: GB)
  Receive Date: 20190910
  Receipt Date: 20190910
  Transmission Date: 20191005
  Serious: Yes (Hospitalization, Other)
  Sender: FDA-Public Use
  Company Number: GB-SHIRE-GB201929334

PATIENT
  Age: 12 Year
  Sex: Male

DRUGS (2)
  1. LAMOTRIGINE. [Suspect]
     Active Substance: LAMOTRIGINE
     Indication: EPILEPSY
     Dosage: UNK
     Route: 065
  2. 489 (LISDEXAMFETAMINE DIMESYLATE) [Suspect]
     Active Substance: LISDEXAMFETAMINE DIMESYLATE
     Indication: ATTENTION DEFICIT/HYPERACTIVITY DISORDER
     Dosage: 20 MILLIGRAM
     Route: 048
     Dates: start: 20190803, end: 20190804

REACTIONS (4)
  - Anxiety [Recovering/Resolving]
  - Hallucination [Recovering/Resolving]
  - Headache [Recovering/Resolving]
  - Epilepsy [Recovering/Resolving]

NARRATIVE: CASE EVENT DATE: 20190803
